FAERS Safety Report 19226387 (Version 1)
Quarter: 2021Q2

REPORT INFORMATION
  Report Type: Spontaneous
  Country: US (occurrence: US)
  Receive Date: 20210506
  Receipt Date: 20210506
  Transmission Date: 20210717
  Serious: Yes (Other)
  Sender: FDA-Public Use
  Company Number: US-AURINIA PHARMACEUTICALS INC.-AUR-000033

PATIENT
  Sex: Female

DRUGS (1)
  1. LUPKYNIS [Suspect]
     Active Substance: VOCLOSPORIN
     Indication: PRODUCT USED FOR UNKNOWN INDICATION
     Dosage: 23.7 MILLIGRAM, BID

REACTIONS (2)
  - Face oedema [Unknown]
  - Hypertension [Unknown]
